FAERS Safety Report 8215916-8 (Version None)
Quarter: 2012Q1

REPORT INFORMATION
  Report Type: 
  Country: None (occurrence: None)
  Receive Date: 20120316
  Receipt Date: 20120308
  Transmission Date: 20120608
  Serious: Yes (Hospitalization)
  Sender: FDA-Public Use
  Company Number: US-BAYER-2011-099711

PATIENT
  Age: 20 Year
  Sex: Female
  Weight: 108.84 kg

DRUGS (3)
  1. YAZ [Suspect]
     Indication: CONTRACEPTION
     Dosage: UNK
     Dates: start: 20061001, end: 20090101
  2. YAZ [Suspect]
     Indication: MENSTRUAL CYCLE MANAGEMENT
  3. ZYRTEC [Concomitant]
     Dosage: UNK UNK, PRN
     Dates: start: 20080719

REACTIONS (5)
  - ANXIETY [None]
  - PAIN [None]
  - ANHEDONIA [None]
  - CHOLECYSTITIS CHRONIC [None]
  - GALLBLADDER DISORDER [None]
